FAERS Safety Report 9419070 (Version 2)
Quarter: 2013Q3

REPORT INFORMATION
  Report Type: Spontaneous
  Country: US (occurrence: US)
  Receive Date: 20130725
  Receipt Date: 20130910
  Transmission Date: 20140515
  Serious: Yes (Other)
  Sender: FDA-Public Use
  Company Number: PHEH2013US015613

PATIENT
  Sex: 0

DRUGS (1)
  1. EXELON PATCH [Suspect]
     Indication: INSOMNIA
     Dosage: 9.5 MG, QD
     Route: 062

REACTIONS (16)
  - Suicidal ideation [Unknown]
  - Depression [Unknown]
  - Urinary tract infection [Unknown]
  - Panic attack [Unknown]
  - Pain [Unknown]
  - Diet refusal [Unknown]
  - Muscular weakness [Unknown]
  - Anxiety [Unknown]
  - Headache [Unknown]
  - Dizziness [Unknown]
  - Abdominal pain upper [Unknown]
  - Fatigue [Unknown]
  - Asthenia [Unknown]
  - Convulsion [Unknown]
  - Insomnia [Unknown]
  - Drug ineffective [Unknown]
